FAERS Safety Report 15821274 (Version 1)
Quarter: 2019Q1

REPORT INFORMATION
  Report Type: Spontaneous
  Country: US (occurrence: US)
  Receive Date: 20190114
  Receipt Date: 20190114
  Transmission Date: 20190417
  Serious: Yes (Death, Hospitalization, Other)
  Sender: FDA-Public Use
  Company Number: US-SA-2019SA008330

PATIENT
  Age: 29 Year
  Sex: Female

DRUGS (1)
  1. DIPHENHYDRAMINE. [Suspect]
     Active Substance: DIPHENHYDRAMINE
     Dosage: 3200 MG, 1X, 64 (50 MG) TABLETS
     Route: 048

REACTIONS (12)
  - Brain death [Fatal]
  - Hypotonia [Unknown]
  - Hallucination [Unknown]
  - Pupillary light reflex tests abnormal [Not Recovered/Not Resolved]
  - Hypertension [Unknown]
  - Overdose [Recovered/Resolved]
  - Intentional overdose [Recovered/Resolved]
  - Toxicity to various agents [Recovered/Resolved]
  - Tachycardia [Not Recovered/Not Resolved]
  - Mydriasis [Unknown]
  - Pulseless electrical activity [Recovered/Resolved]
  - Pupil fixed [Unknown]
